FAERS Safety Report 24305626 (Version 2)
Quarter: 2024Q4

REPORT INFORMATION
  Report Type: Spontaneous
  Country: DE (occurrence: DE)
  Receive Date: 20240911
  Receipt Date: 20241108
  Transmission Date: 20250114
  Serious: Yes (Other)
  Sender: SANDOZ
  Company Number: DE-BRISTOL-MYERS SQUIBB COMPANY-2024-136047

PATIENT
  Age: 72 Year
  Sex: Female

DRUGS (21)
  1. CARBOPLATIN [Suspect]
     Active Substance: CARBOPLATIN
     Indication: Non-small cell lung cancer
     Dosage: 273.000MG TIW
     Route: 042
     Dates: start: 20240429, end: 20240522
  2. PACLITAXEL [Suspect]
     Active Substance: PACLITAXEL
     Dosage: 85 MG
     Route: 065
     Dates: start: 20240429
  3. PACLITAXEL [Suspect]
     Active Substance: PACLITAXEL
     Indication: Non-small cell lung cancer
     Dosage: 95 MG
     Route: 065
     Dates: start: 20240522
  4. OPDIVO [Suspect]
     Active Substance: NIVOLUMAB
     Indication: Non-small cell lung cancer
     Dosage: 360.000MG TIW
     Route: 042
     Dates: start: 20240429
  5. YERVOY [Suspect]
     Active Substance: IPILIMUMAB
     Indication: Non-small cell lung cancer
     Dosage: 77.000MG TIW
     Route: 042
     Dates: start: 20240429
  6. CHOLECALCIFEROL [Concomitant]
     Active Substance: CHOLECALCIFEROL
     Indication: Prophylaxis
     Dosage: UNK
     Route: 065
     Dates: start: 20240425
  7. ENTECAVIR [Concomitant]
     Active Substance: ENTECAVIR
     Indication: Product used for unknown indication
     Dosage: UNK
     Route: 065
     Dates: start: 20240823
  8. FENTANYL [Concomitant]
     Active Substance: FENTANYL
     Indication: Non-small cell lung cancer
     Dosage: UNK
     Route: 065
     Dates: start: 20240821
  9. FENTANYL [Concomitant]
     Active Substance: FENTANYL
     Indication: Product used for unknown indication
     Dosage: UNK
     Route: 065
     Dates: start: 20240821
  10. FENTANYL [Concomitant]
     Active Substance: FENTANYL
     Dosage: UNK
     Route: 065
     Dates: start: 20240821
  11. FENTANYL [Concomitant]
     Active Substance: FENTANYL
     Dosage: UNK
     Route: 065
     Dates: start: 20241004
  12. MOVICOL [Concomitant]
     Active Substance: POLYETHYLENE GLYCOL 3350\POTASSIUM CHLORIDE\SODIUM BICARBONATE\SODIUM CHLORIDE
     Indication: Prophylaxis
     Dosage: UNK
     Route: 065
     Dates: start: 20240508
  13. METAMIZOLE [Concomitant]
     Active Substance: METAMIZOLE
     Indication: Product used for unknown indication
     Dosage: UNK
     Route: 065
     Dates: start: 20240405
  14. PANTOPRAZOLE SODIUM [Concomitant]
     Active Substance: PANTOPRAZOLE SODIUM
     Indication: Product used for unknown indication
     Dosage: UNK
     Route: 065
     Dates: start: 20240823
  15. PREDNISOLONE [Concomitant]
     Active Substance: PREDNISOLONE
     Indication: Product used for unknown indication
     Dosage: UNK
     Route: 065
     Dates: start: 20240823
  16. OLODATEROL HYDROCHLORIDE\TIOTROPIUM BROMIDE MONOHYDRATE [Concomitant]
     Active Substance: OLODATEROL HYDROCHLORIDE\TIOTROPIUM BROMIDE MONOHYDRATE
     Indication: Product used for unknown indication
     Dosage: UNKNOWN
     Route: 065
  17. TORSEMIDE [Concomitant]
     Active Substance: TORSEMIDE
     Dosage: UNK
     Route: 065
  18. TORSEMIDE [Concomitant]
     Active Substance: TORSEMIDE
     Dosage: UNK
     Route: 065
  19. TORSEMIDE [Concomitant]
     Active Substance: TORSEMIDE
     Dosage: UNK
     Route: 065
  20. TORSEMIDE [Concomitant]
     Active Substance: TORSEMIDE
     Dosage: UNK
     Route: 065
  21. TORSEMIDE [Concomitant]
     Active Substance: TORSEMIDE
     Indication: Product used for unknown indication
     Dosage: UNKNOWN
     Route: 065

REACTIONS (4)
  - Immune-mediated hypothyroidism [Not Recovered/Not Resolved]
  - Petechiae [Recovered/Resolved]
  - Hyperglycaemia [Unknown]
  - Oedema peripheral [Recovered/Resolved]

NARRATIVE: CASE EVENT DATE: 20240528
